FAERS Safety Report 20000800 (Version 3)
Quarter: 2022Q4

REPORT INFORMATION
  Report Type: Spontaneous
  Country: US (occurrence: US)
  Receive Date: 20211027
  Receipt Date: 20221004
  Transmission Date: 20230113
  Serious: No
  Sender: FDA-Public Use
  Company Number: US-SA-SAC20211026000681

PATIENT
  Age: 19 Year
  Sex: Male

DRUGS (1)
  1. DUPIXENT [Suspect]
     Active Substance: DUPILUMAB
     Indication: Dermatitis atopic
     Dosage: 300 MG, QOW
     Route: 058
     Dates: start: 20210902

REACTIONS (6)
  - Weight increased [Unknown]
  - Mental status changes [Unknown]
  - General physical condition abnormal [Unknown]
  - Eyelid margin crusting [Unknown]
  - Eyelids pruritus [Unknown]
  - Eye pruritus [Unknown]
